FAERS Safety Report 14669815 (Version 1)
Quarter: 2018Q1

REPORT INFORMATION
  Report Type: Spontaneous
  Country: US (occurrence: US)
  Receive Date: 20180321
  Receipt Date: 20180321
  Transmission Date: 20180509
  Serious: Yes (Hospitalization)
  Sender: FDA-Public Use
  Company Number: None

PATIENT
  Age: 46 Year
  Sex: Male

DRUGS (9)
  1. TACROLIMUS 1MG CAP [Suspect]
     Active Substance: TACROLIMUS
     Indication: RENAL TRANSPLANT
     Route: 048
     Dates: start: 20161008
  2. PROPANEDIOL [Concomitant]
  3. MULTI VIT [Concomitant]
  4. NICOTINAMIDE [Concomitant]
     Active Substance: NIACINAMIDE
  5. FELODIPINE. [Concomitant]
     Active Substance: FELODIPINE
  6. AMLODIPINE [Concomitant]
     Active Substance: AMLODIPINE BESYLATE
  7. VITAMIN D [Concomitant]
     Active Substance: CHOLECALCIFEROL
  8. CYCLOPHOSPHAMIDE 50 MG CAP [Suspect]
     Active Substance: CYCLOPHOSPHAMIDE
     Indication: RENAL TRANSPLANT
     Route: 048
     Dates: start: 20170907
  9. VELCADE [Concomitant]
     Active Substance: BORTEZOMIB

REACTIONS (1)
  - Hospitalisation [None]
